FAERS Safety Report 21328235 (Version 2)
Quarter: 2022Q4

REPORT INFORMATION
  Report Type: Report from Study
  Country: US (occurrence: US)
  Receive Date: 20220913
  Receipt Date: 20221001
  Transmission Date: 20230113
  Serious: Yes (Other)
  Sender: FDA-Public Use
  Company Number: US-ABBVIE-22K-163-4536515-00

PATIENT
  Sex: Female
  Weight: 49.441 kg

DRUGS (2)
  1. SKYRIZI [Suspect]
     Active Substance: RISANKIZUMAB-RZAA
     Indication: Psoriatic arthropathy
     Dosage: TIME INTERVAL: 1 TOTAL: WEEK 0
     Route: 058
     Dates: start: 20220804, end: 20220804
  2. SKYRIZI [Suspect]
     Active Substance: RISANKIZUMAB-RZAA
     Indication: Psoriasis
     Dosage: TIME INTERVAL: 1 TOTAL: WEEK 4 AND THEN EVERY 12 WEEKS
     Route: 058
     Dates: start: 2022, end: 2022

REACTIONS (3)
  - Foot operation [Unknown]
  - Drug hypersensitivity [Unknown]
  - Pain [Unknown]

NARRATIVE: CASE EVENT DATE: 20220101
